FAERS Safety Report 4789877-8 (Version None)
Quarter: 2005Q3

REPORT INFORMATION
  Report Type: 
  Country: None (occurrence: None)
  Receive Date: 20050914
  Receipt Date: 20040921
  Transmission Date: 20060218
  Serious: Yes (Death)
  Sender: FDA-Public Use
  Company Number: 163-20785-04090585

PATIENT
  Age: 57 Year
  Sex: Female

DRUGS (1)
  1. THALIDOMID (THALIDOMIDE) (50 MILLIGRAM, CAPSULES) [Suspect]
     Indication: MYELODYSPLASTIC SYNDROME
     Dosage: 50 MG UP TO 200 MG, QD, ORAL
     Route: 048
     Dates: start: 20040116, end: 20040917

REACTIONS (2)
  - DEATH [None]
  - DISEASE PROGRESSION [None]
